FAERS Safety Report 15592875 (Version 3)
Quarter: 2019Q1

REPORT INFORMATION
  Report Type: Spontaneous
  Country: US (occurrence: US)
  Receive Date: 20181107
  Receipt Date: 20190130
  Transmission Date: 20190417
  Serious: Yes (Other)
  Sender: FDA-Public Use
  Company Number: US-AKORN PHARMACEUTICALS-2018AKN01147

PATIENT
  Age: 16 Year
  Sex: Male
  Weight: 72.56 kg

DRUGS (8)
  1. FISH OIL [Concomitant]
     Active Substance: FISH OIL
  2. MYORISAN [Suspect]
     Active Substance: ISOTRETINOIN
     Indication: ACNE
     Dosage: 40 MG, 1X/DAY
     Route: 048
     Dates: start: 20170918, end: 2018
  3. MYORISAN [Suspect]
     Active Substance: ISOTRETINOIN
     Dosage: 20 MG, EVERY 48 HOURS ^EVERY OTHER DAY WITH 40 MG EVERY OTHER DAY^
     Route: 048
     Dates: start: 20180919, end: 20181024
  4. MYORISAN [Suspect]
     Active Substance: ISOTRETINOIN
     Dosage: 40 MG, EVERY 48 HOURS ^EVERY OTHER DAY WITH 20 MG EVERY OTHER DAY^
     Route: 048
     Dates: start: 20180919, end: 20181024
  5. MYORISAN [Suspect]
     Active Substance: ISOTRETINOIN
     Dosage: UNK
     Dates: start: 201806, end: 20180709
  6. CLARAVIS [Suspect]
     Active Substance: ISOTRETINOIN
     Indication: ACNE
     Dosage: UNK
     Dates: start: 20171213, end: 201806
  7. MULTIVITAMIN [Concomitant]
     Active Substance: VITAMINS
  8. MYORISAN [Suspect]
     Active Substance: ISOTRETINOIN
     Indication: ACNE
     Dosage: UNK
     Dates: start: 20171116, end: 201806

REACTIONS (6)
  - Flat affect [Unknown]
  - Off label use [Recovered/Resolved]
  - Attention deficit/hyperactivity disorder [Not Recovered/Not Resolved]
  - Anger [Unknown]
  - Lip dry [Unknown]
  - Mood altered [Unknown]

NARRATIVE: CASE EVENT DATE: 20170918
